FAERS Safety Report 25869267 (Version 1)
Quarter: 2025Q3

REPORT INFORMATION
  Report Type: Spontaneous
  Country: US (occurrence: None)
  Receive Date: 20250930
  Receipt Date: 20250930
  Transmission Date: 20251020
  Serious: Yes (Hospitalization)
  Sender: FDA-CTU
  Company Number: None

PATIENT
  Age: 69 Year
  Sex: Female
  Weight: 72.6 kg

DRUGS (2)
  1. CEFTRIAXONE [Suspect]
     Active Substance: CEFTRIAXONE
     Indication: Urinary tract infection
     Route: 042
     Dates: start: 20250929, end: 20250929
  2. Ceftriaxone 1000mg/10mL [Concomitant]
     Dates: start: 20250929, end: 20250929

REACTIONS (2)
  - Respiratory failure [None]
  - Anaphylactic reaction [None]

NARRATIVE: CASE EVENT DATE: 20250929
